FAERS Safety Report 7626034-1 (Version None)
Quarter: 2011Q3

REPORT INFORMATION
  Report Type: 
  Country: None (occurrence: None)
  Receive Date: 20110721
  Receipt Date: 20110707
  Transmission Date: 20111222
  Serious: Yes (Death)
  Sender: FDA-Public Use
  Company Number: US-PFIZER INC-2010001720

PATIENT
  Age: 23 Year
  Sex: Female

DRUGS (7)
  1. ZOLPIDEM [Suspect]
     Dosage: UNK
     Route: 048
  2. ALPRAZOLAM [Suspect]
     Dosage: UNK
     Route: 048
  3. FLUOXETINE [Suspect]
     Dosage: UNK
     Route: 048
  4. PAROXETINE [Suspect]
     Dosage: UNK
     Route: 048
  5. GABAPENTIN [Suspect]
     Dosage: UNK
     Route: 048
  6. NAPROXEN [Suspect]
     Dosage: UNK
     Route: 048
  7. ACETAMINOPHEN [Suspect]
     Dosage: UNK
     Route: 048

REACTIONS (1)
  - COMPLETED SUICIDE [None]
